FAERS Safety Report 9138271 (Version 1)
Quarter: 2013Q1

REPORT INFORMATION
  Report Type: Spontaneous
  Country: IT (occurrence: IT)
  Receive Date: 20130305
  Receipt Date: 20130305
  Transmission Date: 20140127
  Serious: Yes (Hospitalization)
  Sender: FDA-Public Use
  Company Number: IT-RANBAXY-2013US-65842

PATIENT
  Age: 65 Year
  Sex: Female

DRUGS (5)
  1. PANTOPRAZOLE [Suspect]
     Indication: HIATUS HERNIA
     Dosage: 1 DF DAILY
     Route: 048
     Dates: start: 20130210, end: 20130210
  2. GOLA ACTION 150 MG/100 ML+500 MG/100 ML [Concomitant]
     Indication: OROPHARYNGEAL PAIN
     Dosage: UNK
     Route: 065
     Dates: start: 20130207, end: 20130211
  3. EUTIROX [Concomitant]
     Indication: HYPOPARATHYROIDISM
     Dosage: UNK
     Route: 048
  4. ACECLOFENAC [Concomitant]
     Indication: ARTHRALGIA
     Dosage: UNK
     Route: 065
  5. MERCURIOPLUS [Concomitant]
     Indication: OROPHARYNGEAL PAIN
     Dosage: UNK
     Route: 048
     Dates: start: 20130210

REACTIONS (2)
  - Dyspnoea [Recovering/Resolving]
  - Laryngeal oedema [Recovering/Resolving]
